FAERS Safety Report 6191904-0 (Version None)
Quarter: 2009Q2

REPORT INFORMATION
  Report Type: 
  Country: None (occurrence: None)
  Receive Date: 20090515
  Receipt Date: 20090514
  Transmission Date: 20091009
  Serious: Yes (Other)
  Sender: FDA-Public Use
  Company Number: US-ASTRAZENECA-2009UW08505

PATIENT
  Age: 16693 Day
  Sex: Female
  Weight: 91.6 kg

DRUGS (5)
  1. SYMBICORT [Suspect]
     Indication: ASTHMA
     Dosage: 160/4.5 UG
     Route: 055
     Dates: start: 20090327, end: 20090328
  2. FLAGYL [Concomitant]
     Indication: VAGINITIS BACTERIAL
     Route: 048
  3. CARTIA XT [Concomitant]
     Indication: ARRHYTHMIA
     Route: 048
  4. PROVENTIL-HFA [Concomitant]
     Indication: ASTHMA
     Route: 055
  5. NASONEX [Concomitant]
     Route: 045

REACTIONS (6)
  - DRY THROAT [None]
  - PHARYNGEAL ERYTHEMA [None]
  - PHARYNGEAL OEDEMA [None]
  - STOMATITIS [None]
  - THROAT IRRITATION [None]
  - THROAT TIGHTNESS [None]
